FAERS Safety Report 21398270 (Version 1)
Quarter: 2022Q3

REPORT INFORMATION
  Report Type: Report from Study
  Country: US (occurrence: None)
  Receive Date: 20220930
  Receipt Date: 20220930
  Transmission Date: 20221026
  Serious: Yes (Hospitalization, Other)
  Sender: FDA-Public Use
  Company Number: US-Eisai Medical Research-EC-2022-121292

PATIENT
  Age: 50 Year
  Sex: Male

DRUGS (2)
  1. LENVIMA [Suspect]
     Active Substance: LENVATINIB
     Indication: Renal cancer
     Route: 048
     Dates: start: 20220808, end: 20220809
  2. LENVIMA [Suspect]
     Active Substance: LENVATINIB
     Route: 048
     Dates: start: 202208, end: 20220827

REACTIONS (4)
  - Cerebral haemorrhage [Unknown]
  - Pneumonia [Unknown]
  - Malignant neoplasm progression [Unknown]
  - Weight decreased [Unknown]

NARRATIVE: CASE EVENT DATE: 20220101
